FAERS Safety Report 14015183 (Version 1)
Quarter: 2017Q3

REPORT INFORMATION
  Report Type: Spontaneous
  Country: US (occurrence: US)
  Receive Date: 20170927
  Receipt Date: 20170927
  Transmission Date: 20171128
  Serious: No
  Sender: FDA-Public Use
  Company Number: US-MIKART, INC.-2027877

PATIENT
  Age: 66 Year
  Sex: Female

DRUGS (1)
  1. BUTALBITAL, ACETAMINOPHEN, AND CAFFEINE [Suspect]
     Active Substance: ACETAMINOPHEN\BUTALBITAL\CAFFEINE
     Indication: HEADACHE
     Route: 048
     Dates: start: 20170626, end: 20170704

REACTIONS (5)
  - Nasal congestion [Not Recovered/Not Resolved]
  - Tinnitus [Recovered/Resolved]
  - Pruritus generalised [Recovered/Resolved]
  - Feeling abnormal [Not Recovered/Not Resolved]
  - Ear congestion [Recovered/Resolved]
